FAERS Safety Report 8476150-X (Version None)
Quarter: 2012Q2

REPORT INFORMATION
  Report Type: 
  Country: None (occurrence: None)
  Receive Date: 20120628
  Receipt Date: 20120619
  Transmission Date: 20120825
  Serious: Yes (Hospitalization)
  Sender: FDA-Public Use
  Company Number: US-ELI_LILLY_AND_COMPANY-US201206006984

PATIENT
  Sex: Female

DRUGS (21)
  1. PROZAC [Suspect]
     Indication: DEPRESSION
     Dosage: 20 MG, UNK
  2. PROZAC [Suspect]
     Dosage: 60 MG, QD
     Dates: start: 19970101
  3. KLOR-CON [Concomitant]
  4. ZOCOR [Concomitant]
  5. VITAMIN D [Concomitant]
     Dosage: 5000 MG, BID
  6. FORTEO [Suspect]
     Indication: OSTEOPOROSIS
     Dosage: 20 UG, QD
     Dates: start: 20110801
  7. PROZAC [Suspect]
     Dosage: 40 MG, EACH MORNING
  8. PROZAC [Suspect]
     Dosage: 60 MG, EACH MORNING
  9. AMBIEN [Concomitant]
     Dosage: 1 DF, PRN
  10. VITAMIN B COMPLEX CAP [Concomitant]
  11. FLUOXETINE HYDROCHLORIDE [Concomitant]
     Indication: DEPRESSION
     Dosage: 60 MG, QD
  12. COZAAR [Concomitant]
  13. COREG [Concomitant]
  14. PROZAC [Suspect]
     Dosage: 40 MG, UNK
  15. XANAX [Concomitant]
     Dosage: 1 DF, PRN
  16. MULTI-VITAMIN [Concomitant]
  17. PROZAC [Suspect]
     Dosage: 60 MG, UNK
  18. VICODIN [Concomitant]
     Dosage: 1 DF, UNK
  19. PROZAC [Suspect]
     Dosage: 40 MG, EACH EVENING
  20. PRILOSEC [Concomitant]
  21. FISH OIL [Concomitant]

REACTIONS (6)
  - FALL [None]
  - RIB FRACTURE [None]
  - UPPER LIMB FRACTURE [None]
  - WRIST FRACTURE [None]
  - OVERDOSE [None]
  - RHINORRHOEA [None]
